FAERS Safety Report 21079631 (Version 1)
Quarter: 2022Q3

REPORT INFORMATION
  Report Type: Other
  Country: US (occurrence: US)
  Receive Date: 20220714
  Receipt Date: 20220714
  Transmission Date: 20221027
  Serious: No
  Sender: FDA-Public Use
  Company Number: US-PRINSTON PHARMACEUTICAL INC.-2022PRN00155

PATIENT
  Sex: Female
  Weight: 45.351 kg

DRUGS (1)
  1. CLONAZEPAM [Suspect]
     Active Substance: CLONAZEPAM
     Indication: Anxiety
     Dosage: 0.5 MG OR 1 MG, AS NEEDED
     Route: 048
     Dates: start: 20220128, end: 2022

REACTIONS (6)
  - Drug ineffective [Recovered/Resolved]
  - Crying [Recovered/Resolved]
  - Panic attack [Recovered/Resolved]
  - Nervousness [Recovered/Resolved]
  - Headache [Recovered/Resolved]
  - Product substitution issue [Recovered/Resolved]

NARRATIVE: CASE EVENT DATE: 20220101
